FAERS Safety Report 9546594 (Version 1)
Quarter: 2013Q3

REPORT INFORMATION
  Report Type: Spontaneous
  Country: US (occurrence: US)
  Receive Date: 20130924
  Receipt Date: 20130924
  Transmission Date: 20140515
  Serious: No
  Sender: FDA-Public Use
  Company Number: US-009507513-1309USA010223

PATIENT
  Age: 17 Year
  Sex: Female
  Weight: 85.71 kg

DRUGS (2)
  1. IMPLANON [Suspect]
     Indication: CONTRACEPTION
     Dosage: UNK
     Route: 059
     Dates: start: 201209
  2. LORATADINE [Concomitant]
     Route: 048

REACTIONS (2)
  - Device breakage [Unknown]
  - Blood cholesterol increased [Unknown]
